FAERS Safety Report 5730535-0 (Version None)
Quarter: 2008Q2

REPORT INFORMATION
  Report Type: 
  Country: None (occurrence: None)
  Receive Date: 20080507
  Receipt Date: 20080501
  Transmission Date: 20081010
  Serious: Yes (Other)
  Sender: FDA-Public Use
  Company Number: US-ALLERGAN-0805215US

PATIENT
  Sex: Female

DRUGS (1)
  1. ACULAR LS [Suspect]
     Indication: EYE IRRITATION
     Dosage: UNK, UNKNOWN
     Route: 047

REACTIONS (2)
  - ERYTHROPSIA [None]
  - VISION BLURRED [None]
